FAERS Safety Report 7282638-X (Version None)
Quarter: 2011Q1

REPORT INFORMATION
  Report Type: 
  Country: None (occurrence: None)
  Receive Date: 20110209
  Receipt Date: 20110131
  Transmission Date: 20110831
  Serious: Yes (Congenital Anomaly)
  Sender: FDA-Public Use
  Company Number: FR-SANOFI-AVENTIS-2011SA006930

PATIENT
  Age: 0 Day

DRUGS (3)
  1. HUMIRA [Suspect]
     Route: 064
     Dates: start: 20080101
  2. NSAID'S [Concomitant]
     Route: 064
  3. RIFAMPIN AND ISONIAZID [Suspect]
     Route: 064
     Dates: start: 20070901

REACTIONS (1)
  - SKULL MALFORMATION [None]
